FAERS Safety Report 6686526-9 (Version None)
Quarter: 2010Q2

REPORT INFORMATION
  Report Type: 
  Country: None (occurrence: None)
  Receive Date: 20100419
  Receipt Date: 20100405
  Transmission Date: 20101027
  Serious: Yes (Hospitalization)
  Sender: FDA-Public Use
  Company Number: US-ELI_LILLY_AND_COMPANY-US201003003336

PATIENT
  Sex: Female

DRUGS (7)
  1. FORTEO [Suspect]
     Indication: OSTEOPOROSIS
     Dosage: 20 UG, DAILY (1/D)
     Dates: start: 20090601
  2. BUSPIRONE HCL [Concomitant]
  3. PREVACID [Concomitant]
  4. FEMARA [Concomitant]
  5. SERTRALINE HCL [Concomitant]
  6. COSOPT [Concomitant]
  7. TRAVATAN [Concomitant]

REACTIONS (6)
  - BALANCE DISORDER [None]
  - DIZZINESS [None]
  - DRUG DOSE OMISSION [None]
  - INJECTION SITE PAIN [None]
  - KIDNEY INFECTION [None]
  - VISUAL ACUITY REDUCED [None]
